FAERS Safety Report 7110601-8 (Version None)
Quarter: 2010Q4

REPORT INFORMATION
  Report Type: 
  Country: None (occurrence: None)
  Receive Date: 20101118
  Receipt Date: 20101108
  Transmission Date: 20110411
  Serious: Yes (Hospitalization)
  Sender: FDA-Public Use
  Company Number: US-ROCHE-740827

PATIENT
  Age: 75 Year
  Sex: Female
  Weight: 72 kg

DRUGS (2)
  1. BLINDED BEVACIZUMAB [Suspect]
     Indication: GLIOBLASTOMA
     Dosage: DATE OF LAST DOSE PRIOR TO SAE: 01 NOVEMBER 2010, FREQUENCY: ON DAY ONE AND 15
     Route: 042
     Dates: start: 20101025
  2. TEMOZOLOMIDE [Suspect]
     Indication: GLIOBLASTOMA
     Dosage: DATE OF LAST DOSE PRIOR TO SAE: 31 OCTOBER 2010, TOTAL DOSE: 980 MG
     Route: 048
     Dates: start: 20101025

REACTIONS (2)
  - ABDOMINAL PAIN [None]
  - MENTAL STATUS CHANGES [None]
